FAERS Safety Report 10134743 (Version 4)
Quarter: 2014Q2

REPORT INFORMATION
  Report Type: Report from Study
  Country: JP (occurrence: JP)
  Receive Date: 20140428
  Receipt Date: 20140528
  Transmission Date: 20141212
  Serious: Yes (Hospitalization)
  Sender: FDA-Public Use
  Company Number: JP-VERTEX PHARMACEUTICALS INC-2014-001996

PATIENT
  Age: 55 Year
  Sex: Male
  Weight: 62 kg

DRUGS (11)
  1. MP-424 [Suspect]
     Indication: CHRONIC HEPATITIS C
     Dosage: 400 MG, BID
     Route: 048
     Dates: start: 20131021, end: 20131113
  2. MP-424 [Suspect]
     Dosage: 300 MG, BID
     Route: 048
     Dates: start: 20131114, end: 20131114
  3. MP-424 [Suspect]
     Dosage: 200 MG, BID
     Route: 048
     Dates: start: 20131115, end: 20140414
  4. MP-424 [Suspect]
     Indication: CHRONIC HEPATITIS C
     Dosage: 600X10^4UNITS/TIME, 6X/WEEK
     Route: 042
     Dates: start: 20131021, end: 20131116
  5. MP-424 [Suspect]
     Dosage: 600X10^4UNITS/TIME, 3/WEEK
     Route: 042
     Dates: start: 20131118, end: 20140411
  6. LENDORMIN [Concomitant]
     Indication: INSOMNIA
     Dosage: 0.25 MG, UNK
     Route: 048
     Dates: start: 20131022
  7. LOXONIN [Concomitant]
     Indication: PROPHYLAXIS
     Dosage: 60 MG, PRN
     Route: 048
     Dates: start: 20131025, end: 20140411
  8. PARIET [Concomitant]
     Indication: PROPHYLAXIS AGAINST GASTROINTESTINAL ULCER
     Dosage: 10 MG, QD
     Route: 048
     Dates: start: 20131028
  9. FEBURIC [Concomitant]
     Indication: HYPERURICAEMIA
     Dosage: 10 MG, QD
     Route: 048
     Dates: start: 20140315
  10. URSODEOXYCHOLIC ACID [Concomitant]
     Indication: CHRONIC HEPATITIS C
     Dosage: 300 MG, TID
     Route: 048
  11. ZETIA [Concomitant]
     Indication: DYSLIPIDAEMIA
     Dosage: 10 MG, QD
     Route: 048

REACTIONS (1)
  - Congestive cardiomyopathy [Recovering/Resolving]
